FAERS Safety Report 8986977 (Version 1)
Quarter: 2012Q4

REPORT INFORMATION
  Report Type: 
  Country: IT (occurrence: IT)
  Receive Date: 20121226
  Receipt Date: 20121226
  Transmission Date: 20130627
  Serious: Yes (Hospitalization, Other)
  Sender: FDA-Public Use
  Company Number: CHPA2012IT025788

PATIENT
  Age: 15 Year
  Sex: Female

DRUGS (1)
  1. IBUPROFEN [Suspect]
     Indication: PAIN
     Dosage: 400 mg, QD
     Route: 048
     Dates: start: 20121016, end: 20121023

REACTIONS (2)
  - Pericarditis [Recovered/Resolved]
  - Gastritis [Recovered/Resolved]
